FAERS Safety Report 14899290 (Version 6)
Quarter: 2018Q4

REPORT INFORMATION
  Report Type: Spontaneous
  Country: US (occurrence: US)
  Receive Date: 20180516
  Receipt Date: 20181026
  Transmission Date: 20190204
  Serious: Yes (Hospitalization)
  Sender: FDA-Public Use
  Company Number: US-CIPLA LTD.-2018US17810

PATIENT

DRUGS (2)
  1. LAMOTRIGINE. [Suspect]
     Active Substance: LAMOTRIGINE
     Dosage: UNK
     Route: 048
  2. ESCITALOPRAM [Suspect]
     Active Substance: ESCITALOPRAM OXALATE
     Dosage: UNK
     Route: 048

REACTIONS (9)
  - Acute respiratory distress syndrome [Unknown]
  - Serotonin syndrome [Unknown]
  - Toxicity to various agents [Recovered/Resolved]
  - Overdose [Unknown]
  - Electrocardiogram QRS complex prolonged [Recovered/Resolved]
  - Pneumonia aspiration [Unknown]
  - Rhabdomyolysis [Unknown]
  - Somnolence [Recovered/Resolved]
  - Bundle branch block left [Recovered/Resolved]
